FAERS Safety Report 15302043 (Version 1)
Quarter: 2018Q3

REPORT INFORMATION
  Report Type: Report from Study
  Country: DE (occurrence: DE)
  Receive Date: 20180821
  Receipt Date: 20180821
  Transmission Date: 20181010
  Serious: Yes (Life-Threatening)
  Sender: FDA-Public Use
  Company Number: DE-SAKK-2018SA218419AA

PATIENT
  Age: 71 Year
  Sex: Female
  Weight: 86 kg

DRUGS (6)
  1. HERCEPTIN [Suspect]
     Active Substance: TRASTUZUMAB
     Indication: HER-2 POSITIVE BREAST CANCER
     Dosage: MOST RECENT DOSE PRIOR TO SECOND EPISODE OF WHITE BLOOD CELL DECREASED: 26/JUL/2017
     Route: 042
     Dates: start: 20170131
  2. PERJETA [Suspect]
     Active Substance: PERTUZUMAB
     Indication: HER-2 POSITIVE BREAST CANCER
     Dosage: MOST RECENT DOSE PRIOR TO SECOND EPISODE OF WHITE BLOOD CELL DECREASED: 26/JUL/2017
     Route: 042
     Dates: start: 20170131
  3. DOCETAXEL. [Suspect]
     Active Substance: DOCETAXEL
     Indication: HER-2 POSITIVE BREAST CANCER
     Dosage: MOST RECENT DOSE PRIOR TO SECOND EPISODE OF WHITE BLOOD CELL DECREASED: 26/JUL/2017
     Route: 042
     Dates: start: 20170131
  4. TAVEGIL [CLEMASTINE] [Concomitant]
     Indication: PROPHYLAXIS
     Dosage: DAILY DOSE: 1 DF DOSAGE FORM EVERY 21 DAYS
     Route: 042
     Dates: start: 20170131
  5. DEXAMETHASON [DEXAMETHASONE] [Concomitant]
     Active Substance: DEXAMETHASONE
     Indication: PROPHYLAXIS
     Dosage: DAILY DOSE: 12 MG MILLGRAM(S) EVERY 21 DAYS
     Route: 042
     Dates: start: 20170131
  6. RANITIDIN [Concomitant]
     Active Substance: RANITIDINE HYDROCHLORIDE
     Indication: PROPHYLAXIS
     Dosage: DAILY DOSE: 1 DF DOSAGE FORM EVERY 21 DAYS
     Route: 042

REACTIONS (8)
  - Paraesthesia [Not Recovered/Not Resolved]
  - Alopecia [Not Recovered/Not Resolved]
  - Fatigue [Not Recovered/Not Resolved]
  - Anaemia [Not Recovered/Not Resolved]
  - Pain in extremity [Not Recovered/Not Resolved]
  - Diarrhoea [Not Recovered/Not Resolved]
  - White blood cell count decreased [Recovered/Resolved]
  - Chills [Recovered/Resolved]

NARRATIVE: CASE EVENT DATE: 20170131
